FAERS Safety Report 21799684 (Version 1)
Quarter: 2022Q4

REPORT INFORMATION
  Report Type: Spontaneous
  Country: US (occurrence: None)
  Receive Date: 20221229
  Receipt Date: 20221229
  Transmission Date: 20230113
  Serious: Yes (Other)
  Sender: FDA-Public Use
  Company Number: None

PATIENT
  Age: 87 Year
  Sex: Female

DRUGS (1)
  1. PIMECROLIMUS [Suspect]
     Active Substance: PIMECROLIMUS
     Indication: Pruritus
     Dosage: FREQUENCY : TWICE A DAY;?
     Dates: start: 20221118, end: 20221118

REACTIONS (4)
  - Vision blurred [None]
  - Neck pain [None]
  - Pruritus [None]
  - Fungal infection [None]

NARRATIVE: CASE EVENT DATE: 20221111
